FAERS Safety Report 6223378-5 (Version None)
Quarter: 2009Q2

REPORT INFORMATION
  Report Type: 
  Country: None (occurrence: None)
  Receive Date: 20090611
  Receipt Date: 20090529
  Transmission Date: 20091009
  Serious: Yes (Hospitalization, Other)
  Sender: FDA-Public Use
  Company Number: ES-ELI_LILLY_AND_COMPANY-ES200906000291

PATIENT
  Age: 79 Year
  Sex: Female

DRUGS (9)
  1. FORTEO [Suspect]
     Indication: OSTEOPOROSIS
     Dosage: 20 MG, UNKNOWN
     Route: 058
     Dates: start: 20080801
  2. SIMVASTATIN [Concomitant]
     Dosage: 20 MG, EACH EVENING
     Route: 065
  3. SINTROM [Concomitant]
     Dosage: UNK, EACH EVENING
     Route: 065
  4. ORFIDAL [Concomitant]
     Dosage: UNK, EACH EVENING
     Route: 065
  5. ENALAPRIL [Concomitant]
     Dosage: 5 MG, EACH EVENING
     Route: 065
  6. OMEPRAZOL [Concomitant]
     Dosage: 20 MG, EACH MORNING
     Route: 065
  7. SEGURIL [Concomitant]
     Dosage: UNK, EACH MORNING
     Route: 065
  8. PLAVIX [Concomitant]
     Dosage: 75 G, DAILY (1/D) (AT LUNCH)
  9. ADIRO [Concomitant]
     Dosage: UNK, UNKNOWN (AT LUNCH)
     Route: 065

REACTIONS (8)
  - CONTUSION [None]
  - DEPRESSED MOOD [None]
  - DERMATITIS [None]
  - FALL [None]
  - MYOCARDIAL INFARCTION [None]
  - SKULL FRACTURE [None]
  - SUICIDAL IDEATION [None]
  - WEIGHT DECREASED [None]
